FAERS Safety Report 5954134-0 (Version None)
Quarter: 2008Q4

REPORT INFORMATION
  Report Type: 
  Country: None (occurrence: None)
  Receive Date: 20081117
  Receipt Date: 20081110
  Transmission Date: 20090506
  Serious: Yes (Life-Threatening, Hospitalization)
  Sender: FDA-Public Use
  Company Number: DE-JNJFOC-20081101809

PATIENT
  Age: 21 Year
  Sex: Female

DRUGS (11)
  1. HALDOL [Suspect]
     Route: 042
  2. HALDOL [Suspect]
     Route: 042
  3. HALDOL [Suspect]
     Route: 042
  4. HALDOL [Suspect]
     Route: 042
  5. HALDOL [Suspect]
     Route: 042
  6. HALDOL [Suspect]
     Indication: SCHIZOPHRENIA
     Route: 042
  7. LORAZEPAM [Concomitant]
     Route: 042
  8. LORAZEPAM [Concomitant]
     Route: 042
  9. LORAZEPAM [Concomitant]
     Route: 042
  10. LORAZEPAM [Concomitant]
     Route: 042
  11. LORAZEPAM [Concomitant]
     Route: 042

REACTIONS (4)
  - DYSPHAGIA [None]
  - MUTISM [None]
  - PARKINSONISM [None]
  - RESPIRATORY DEPRESSION [None]
